FAERS Safety Report 20851002 (Version 1)
Quarter: 2022Q2

REPORT INFORMATION
  Report Type: Spontaneous
  Country: CN (occurrence: CN)
  Receive Date: 20220519
  Receipt Date: 20220519
  Transmission Date: 20220721
  Serious: Yes (Other)
  Sender: FDA-Public Use
  Company Number: CN-PFIZER INC-202200702305

PATIENT
  Age: 32 Year
  Sex: Female
  Weight: 60 kg

DRUGS (2)
  1. HEMABATE [Suspect]
     Active Substance: CARBOPROST TROMETHAMINE
     Indication: Uterine hypotonus
     Dosage: 250 UG, 1X/DAY
     Route: 030
     Dates: start: 20220430, end: 20220430
  2. HEMABATE [Suspect]
     Active Substance: CARBOPROST TROMETHAMINE
     Indication: Intrapartum haemorrhage

REACTIONS (3)
  - Gastrointestinal disorder [Recovering/Resolving]
  - Abdominal discomfort [Recovering/Resolving]
  - Vomiting [Recovering/Resolving]

NARRATIVE: CASE EVENT DATE: 20220430
